FAERS Safety Report 20832367 (Version 1)
Quarter: 2022Q2

REPORT INFORMATION
  Report Type: Spontaneous
  Country: DE (occurrence: DE)
  Receive Date: 20220516
  Receipt Date: 20220516
  Transmission Date: 20220721
  Serious: Yes (Other)
  Sender: FDA-Public Use
  Company Number: DE-ALKEM LABORATORIES LIMITED-DE-ALKEM-2022-04303

PATIENT
  Age: 33 Year
  Sex: Female

DRUGS (3)
  1. CEFUROXIME AXETIL [Suspect]
     Active Substance: CEFUROXIME AXETIL
     Indication: Product used for unknown indication
     Dosage: 1750 MILLIGRAM, EVERY 1 DAY
     Route: 048
     Dates: start: 20080311, end: 20180311
  2. ACETAMINOPHEN [Suspect]
     Active Substance: ACETAMINOPHEN
     Indication: Product used for unknown indication
     Dosage: 3500 MILLIGRAM, EVERY 1 DAY
     Route: 048
     Dates: start: 20180311, end: 20180311
  3. ALCOHOL\DEXTROMETHORPHAN HYDROBROMIDE [Suspect]
     Active Substance: ALCOHOL\DEXTROMETHORPHAN HYDROBROMIDE
     Indication: Product used for unknown indication
     Dosage: 160 MILLIGRAM, EVERY 1 DAY
     Route: 048
     Dates: start: 20180311, end: 20180311

REACTIONS (2)
  - Suicide attempt [Unknown]
  - Intentional overdose [Unknown]
